FAERS Safety Report 5113269-5 (Version None)
Quarter: 2006Q3

REPORT INFORMATION
  Report Type: 
  Country: None (occurrence: None)
  Receive Date: 20060920
  Receipt Date: 20060908
  Transmission Date: 20061208
  Serious: Yes (Hospitalization)
  Sender: FDA-Public Use
  Company Number: US-ITMN-214256

PATIENT
  Age: 38 Year
  Sex: Female

DRUGS (14)
  1. INTERFERON ALFACON-1 (15 UG) [Suspect]
     Indication: HEPATITIS C
     Dosage: 15 UG; QD; SC
     Route: 058
     Dates: start: 20051012
  2. MORPHINE SULFATE [Concomitant]
  3. SKELAXIN [Concomitant]
  4. OXCARBAZEPINE [Concomitant]
  5. FIORICET [Concomitant]
  6. NICOTINE [Concomitant]
  7. PAMINE [Concomitant]
  8. ZOLOFT [Concomitant]
  9. AMBIEN [Concomitant]
  10. BACLOFEN [Concomitant]
  11. ENULOSE [Concomitant]
  12. ADVAIR DISKUS 100/50 [Concomitant]
  13. FLONASE [Concomitant]
  14. ALBUTEROL [Concomitant]

REACTIONS (35)
  - ABDOMINAL PAIN UPPER [None]
  - ARTHRALGIA [None]
  - BACK PAIN [None]
  - BLOOD TRIGLYCERIDES INCREASED [None]
  - BONE PAIN [None]
  - CARDIAC MURMUR [None]
  - DECREASED ACTIVITY [None]
  - DECREASED APPETITE [None]
  - DEPRESSION [None]
  - DIARRHOEA [None]
  - DIZZINESS [None]
  - DYSPNOEA [None]
  - EYE SWELLING [None]
  - FATIGUE [None]
  - GASTRITIS [None]
  - HAEMATEMESIS [None]
  - HEADACHE [None]
  - HEART VALVE INSUFFICIENCY [None]
  - HYPERAESTHESIA [None]
  - HYPOTRICHOSIS [None]
  - INJECTION SITE DISCOLOURATION [None]
  - INJECTION SITE OEDEMA [None]
  - INSOMNIA [None]
  - LACRIMATION INCREASED [None]
  - LOCAL SWELLING [None]
  - MYALGIA [None]
  - NASAL CONGESTION [None]
  - OCULAR HYPERAEMIA [None]
  - PHOTOPHOBIA [None]
  - SKIN BURNING SENSATION [None]
  - STOMACH DISCOMFORT [None]
  - SWELLING FACE [None]
  - THYROID FUNCTION TEST ABNORMAL [None]
  - VOMITING [None]
  - WEIGHT DECREASED [None]
